FAERS Safety Report 23233378 (Version 1)
Quarter: 2023Q4

REPORT INFORMATION
  Report Type: Spontaneous
  Country: US (occurrence: US)
  Receive Date: 20231128
  Receipt Date: 20231128
  Transmission Date: 20240110
  Serious: Yes (Hospitalization)
  Sender: FDA-Public Use
  Company Number: US-STRIDES ARCOLAB LIMITED-2023SP017275

PATIENT
  Age: 25 Year
  Sex: Female

DRUGS (1)
  1. LOPERAMIDE [Suspect]
     Active Substance: LOPERAMIDE
     Indication: Diarrhoea
     Dosage: UNK (100-150 TABLETS OF 2 MG LOPERAMIDE (MAXIMUM RECOMMENDED DOSE IS 16 MG/8 TABLETS) PER DAY)
     Route: 065
     Dates: start: 2019

REACTIONS (8)
  - Cardiotoxicity [Recovered/Resolved]
  - Cardiogenic shock [Recovered/Resolved]
  - Syncope [Unknown]
  - Cardiac arrest [Unknown]
  - Ventricular tachycardia [Recovered/Resolved]
  - Overdose [Unknown]
  - Drug abuse [Unknown]
  - Toxicity to various agents [Recovered/Resolved]
